FAERS Safety Report 4299896-6 (Version None)
Quarter: 2004Q1

REPORT INFORMATION
  Report Type: 
  Country: None (occurrence: None)
  Receive Date: 20040219
  Receipt Date: 20040219
  Transmission Date: 20041129
  Serious: Yes (Hospitalization)
  Sender: FDA-Public Use
  Company Number: None

PATIENT
  Age: 67 Year
  Sex: Male
  Weight: 67.1324 kg

DRUGS (7)
  1. AGGRENOX [Suspect]
     Indication: CARDIOVASCULAR DISORDER
     Dosage: 1 PO BID
     Route: 048
  2. FOSINOPRIL SODIUM [Suspect]
     Dosage: 1 PO QD
     Route: 048
  3. LACTULOSE [Concomitant]
  4. PROPRANOLOL [Concomitant]
  5. RABEPRAZOLE SODIUM [Concomitant]
  6. SIMVASTATIN [Concomitant]
  7. SPIRONOLACTONE [Concomitant]

REACTIONS (5)
  - ASTHENIA [None]
  - CONFUSIONAL STATE [None]
  - LETHARGY [None]
  - MENTAL STATUS CHANGES [None]
  - RENAL FAILURE ACUTE [None]
